FAERS Safety Report 4511053-4 (Version None)
Quarter: 2004Q4

REPORT INFORMATION
  Report Type: 
  Country: None (occurrence: None)
  Receive Date: 20041018
  Receipt Date: 20040812
  Transmission Date: 20050328
  Serious: No
  Sender: FDA-Public Use
  Company Number: 208476

PATIENT

DRUGS (3)
  1. XOLAIR [Suspect]
     Indication: ASTHMA
     Dosage: 300 MG, 1/MONTH, SUBCUTANEOUS
     Route: 058
     Dates: start: 20040120, end: 20040707
  2. FROVA (FROVATRIPTAN) [Concomitant]
  3. DIAMOX [Concomitant]

REACTIONS (1)
  - MIGRAINE [None]
